FAERS Safety Report 9251722 (Version 4)
Quarter: 2013Q4

REPORT INFORMATION
  Report Type: Spontaneous
  Country: US (occurrence: US)
  Receive Date: 20130424
  Receipt Date: 20131021
  Transmission Date: 20140711
  Serious: No
  Sender: FDA-Public Use
  Company Number: US-PFIZER INC-2013075236

PATIENT
  Age: 54 Year
  Sex: Female
  Weight: 75.74 kg

DRUGS (5)
  1. LYRICA [Suspect]
     Indication: FIBROMYALGIA
     Dosage: 50 MG, UNK
  2. LORTAB [Concomitant]
     Indication: FIBROMYALGIA
     Dosage: UNK,4X/DAY
  3. LORTAB [Concomitant]
     Indication: NECK PAIN
  4. LORTAB [Concomitant]
     Indication: BACK PAIN
  5. LORTAB [Concomitant]
     Indication: ARTHRALGIA

REACTIONS (7)
  - Pain [Recovered/Resolved]
  - Myalgia [Recovered/Resolved]
  - Arthralgia [Recovered/Resolved]
  - Neuralgia [Recovered/Resolved]
  - Malaise [Recovered/Resolved]
  - Muscle spasms [Unknown]
  - Depression [Unknown]
